FAERS Safety Report 13686253 (Version 1)
Quarter: 2017Q2

REPORT INFORMATION
  Report Type: Spontaneous
  Country: US (occurrence: US)
  Receive Date: 20170623
  Receipt Date: 20170623
  Transmission Date: 20170830
  Serious: Yes (Hospitalization)
  Sender: FDA-Public Use
  Company Number: US-ROCHE-CID000000002222169

PATIENT
  Age: 51 Year
  Sex: Male
  Weight: 89 kg

DRUGS (14)
  1. CELLCEPT [Suspect]
     Active Substance: MYCOPHENOLATE MOFETIL\MYCOPHENOLATE MOFETIL HYDROCHLORIDE
     Indication: NEPHROPATHY
     Route: 048
     Dates: start: 20090121
  2. CITALOPRAM [Concomitant]
     Active Substance: CITALOPRAM HYDROBROMIDE
     Indication: DEPRESSION
     Route: 048
  3. LASIX [Concomitant]
     Active Substance: FUROSEMIDE
     Indication: OEDEMA
     Route: 048
     Dates: start: 20120828
  4. ASA [Concomitant]
     Active Substance: ASPIRIN
     Route: 048
  5. RANITIDINE. [Concomitant]
     Active Substance: RANITIDINE
     Indication: DYSPEPSIA
     Route: 048
  6. TACROLIMUS. [Suspect]
     Active Substance: TACROLIMUS
     Indication: NEPHROPATHY
     Route: 048
     Dates: start: 20090130, end: 20121002
  7. INSULIN [Concomitant]
     Active Substance: INSULIN NOS
  8. HYTRIN [Concomitant]
     Active Substance: TERAZOSIN HYDROCHLORIDE
     Indication: BENIGN PROSTATIC HYPERPLASIA
  9. ISOSORBIDE. [Concomitant]
     Active Substance: ISOSORBIDE
     Indication: ANGINA PECTORIS
     Route: 065
     Dates: start: 20120828
  10. SIMVASTATIN. [Concomitant]
     Active Substance: SIMVASTATIN
     Indication: LIPIDS INCREASED
     Route: 065
     Dates: start: 20090318
  11. PREDNISONE. [Concomitant]
     Active Substance: PREDNISONE
     Route: 065
     Dates: start: 20090518
  12. CARVEDILOL. [Concomitant]
     Active Substance: CARVEDILOL
     Indication: HYPERTENSION
     Route: 048
     Dates: start: 20120928
  13. HYDRALAZINE [Concomitant]
     Active Substance: HYDRALAZINE HYDROCHLORIDE
     Indication: HYPERTENSION
     Route: 048
     Dates: start: 20120828
  14. HYTRIN [Concomitant]
     Active Substance: TERAZOSIN HYDROCHLORIDE
     Indication: HYPERTENSION
     Route: 065

REACTIONS (2)
  - Dehydration [Recovered/Resolved]
  - Diarrhoea [Unknown]

NARRATIVE: CASE EVENT DATE: 20120901
